FAERS Safety Report 24197322 (Version 1)
Quarter: 2024Q3

REPORT INFORMATION
  Report Type: Report from Study
  Country: US (occurrence: US)
  Receive Date: 20240810
  Receipt Date: 20240810
  Transmission Date: 20241017
  Serious: Yes (Other)
  Sender: HLS THERAPEUTICS
  Company Number: US-HLS-202400600

PATIENT
  Age: 40 Year
  Sex: Female

DRUGS (1)
  1. CLOZAPINE [Suspect]
     Active Substance: CLOZAPINE
     Indication: Product used for unknown indication
     Dosage: PATIENT WAS TAKING 1 1/2 TABLETS, A TOTAL OF 75 MG AS THEY WERE THE 50MG TABLET DOSAGE
     Route: 048
     Dates: end: 20240423

REACTIONS (3)
  - Neutrophilia [Unknown]
  - Psychomotor hyperactivity [Unknown]
  - Restless legs syndrome [Unknown]

NARRATIVE: CASE EVENT DATE: 20240626
